FAERS Safety Report 23115395 (Version 5)
Quarter: 2023Q4

REPORT INFORMATION
  Report Type: Report from Study
  Country: PL (occurrence: None)
  Receive Date: 20231027
  Receipt Date: 20231201
  Transmission Date: 20240110
  Serious: Yes (Hospitalization)
  Sender: FDA-Public Use
  Company Number: PL-ROCHE-3434235

PATIENT
  Age: 58 Year
  Sex: Female
  Weight: 67 kg

DRUGS (9)
  1. ATEZOLIZUMAB [Suspect]
     Active Substance: ATEZOLIZUMAB
     Indication: Non-small cell lung cancer metastatic
     Dosage: START DATE OF MOST RECENT DOSE OF STUDY DRUG PRIOR TO AE 09/JUN/2023 9:25 AM?END DATE OF MOST RECENT
     Route: 041
     Dates: start: 20230427
  2. ATEZOLIZUMAB [Suspect]
     Active Substance: ATEZOLIZUMAB
     Indication: Non-small cell lung cancer metastatic
     Dosage: ON 31/AUG/2023 11:55 AM MOST RECENT DOSE OF STUDY DRUG PRIOR TO AE (1880 MG)
     Route: 058
     Dates: start: 20230630
  3. AZITHROMYCIN [Concomitant]
     Active Substance: AZITHROMYCIN
     Indication: Pneumonia
     Route: 048
     Dates: start: 20231003, end: 20231008
  4. ETHAMSYLATE [Concomitant]
     Active Substance: ETHAMSYLATE
     Dosage: 2 CAPSULE
     Route: 048
     Dates: start: 20230427
  5. DEXKETOPROFEN\TRAMADOL [Concomitant]
     Active Substance: DEXKETOPROFEN\TRAMADOL
     Indication: Pain
     Dosage: 1 CAPSULE
     Route: 048
     Dates: start: 20230427
  6. PRESTOZEK COMBI [Concomitant]
     Indication: Hypertension
     Dosage: 1 CAPSULE
     Route: 048
     Dates: start: 20230427
  7. FENOTEROL HYDROBROMIDE\IPRATROPIUM BROMIDE [Concomitant]
     Active Substance: FENOTEROL HYDROBROMIDE\IPRATROPIUM BROMIDE
     Indication: Cough
     Dosage: 2 PUFF
     Route: 055
     Dates: start: 20230427
  8. FENOTEROL HYDROBROMIDE\IPRATROPIUM BROMIDE [Concomitant]
     Active Substance: FENOTEROL HYDROBROMIDE\IPRATROPIUM BROMIDE
     Indication: Dyspnoea
     Route: 055
     Dates: start: 20231003
  9. BUDESONIDE [Concomitant]
     Active Substance: BUDESONIDE
     Indication: Dyspnoea
     Dosage: 1 AMPULE
     Route: 055
     Dates: start: 20231003, end: 20231009

REACTIONS (1)
  - Lower respiratory tract infection [Recovered/Resolved]

NARRATIVE: CASE EVENT DATE: 20230922
